FAERS Safety Report 7210196-4 (Version None)
Quarter: 2011Q1

REPORT INFORMATION
  Report Type: 
  Country: None (occurrence: None)
  Receive Date: 20110105
  Receipt Date: 20101227
  Transmission Date: 20110831
  Serious: Yes (Other)
  Sender: FDA-Public Use
  Company Number: JP-JNJFOC-20101209033

PATIENT
  Age: 23 Year
  Sex: Male
  Weight: 44 kg

DRUGS (13)
  1. PENTASA [Concomitant]
     Indication: CROHN'S DISEASE
     Route: 048
  2. REMICADE [Suspect]
     Route: 042
  3. REMICADE [Suspect]
     Route: 042
  4. BIOFERMIN [Concomitant]
     Indication: DIARRHOEA
     Route: 048
  5. REMICADE [Suspect]
     Route: 042
  6. REMICADE [Suspect]
     Route: 042
  7. REMICADE [Suspect]
     Route: 042
  8. REMICADE [Suspect]
     Route: 042
  9. REMICADE [Suspect]
     Indication: CROHN'S DISEASE
     Route: 042
  10. REMICADE [Suspect]
     Route: 042
  11. PARIET [Concomitant]
     Indication: DUODENAL ULCER
     Route: 048
  12. ZANTAC [Concomitant]
     Indication: DUODENAL ULCER
     Route: 048
  13. FERROUS CITRATE [Concomitant]
     Indication: IRON DEFICIENCY ANAEMIA
     Route: 048

REACTIONS (1)
  - PANCREATITIS [None]
